FAERS Safety Report 9219717 (Version 1)
Quarter: 2013Q1

REPORT INFORMATION
  Report Type: Spontaneous
  Country: US (occurrence: None)
  Receive Date: 20120830
  Receipt Date: 20120830
  Transmission Date: 20140127
  Serious: Yes (Other)
  Sender: FDA-Public Use
  Company Number: PHEH2011US009543

PATIENT
  Age: 67 Year
  Sex: Female

DRUGS (7)
  1. NATEGLINIDE [Suspect]
     Route: 048
     Dates: start: 2004
  2. LIPITOR (ATORVASTATIN CALCIUM) [Concomitant]
  3. RENVELA [Concomitant]
  4. SODIUM CARBONATE (SODIUM BICARBONATE) [Concomitant]
  5. METOPROLOL (METOPROLOL) [Concomitant]
  6. HYDROCHLOROTHIAZIDE (HYDROCHLOROTHIAZIDE) [Concomitant]
  7. CARTIA XT (DILITAZEM) [Concomitant]

REACTIONS (2)
  - Diabetes mellitus inadequate control [None]
  - Eye disorder [None]
